FAERS Safety Report 12885896 (Version 1)
Quarter: 2016Q4

REPORT INFORMATION
  Report Type: Spontaneous
  Country: FR (occurrence: FR)
  Receive Date: 20161026
  Receipt Date: 20161026
  Transmission Date: 20170207
  Serious: Yes (Other)
  Sender: FDA-Public Use
  Company Number: FR-CANTON LABORATORIES, LLC-1058857

PATIENT
  Age: 75 Year
  Sex: Male

DRUGS (7)
  1. ANAPROX DS [Suspect]
     Active Substance: NAPROXEN SODIUM
     Indication: NECK PAIN
     Dates: start: 20160623, end: 20160628
  2. DAIVOBET (CALCIPOTRIOL, BETAMETHASONE) [Concomitant]
  3. ISOPTIN SR [Concomitant]
     Active Substance: VERAPAMIL HYDROCHLORIDE
  4. TRANXENE T-TAB [Concomitant]
     Active Substance: CLORAZEPATE DIPOTASSIUM
  5. SPIRIVA [Concomitant]
     Active Substance: TIOTROPIUM BROMIDE MONOHYDRATE
  6. SERETIDE (SALMETEROL, FLUTICASONE PROPIONATE) [Concomitant]
  7. TANGANIL (ACETYLLEUCINE) [Suspect]
     Active Substance: ACETYLLEUCINE
     Route: 048
     Dates: start: 20160705

REACTIONS (1)
  - Psoriasis [Recovering/Resolving]

NARRATIVE: CASE EVENT DATE: 20160707
